FAERS Safety Report 8977908 (Version 1)
Quarter: 2012Q4

REPORT INFORMATION
  Report Type: 
  Country: JP (occurrence: JP)
  Receive Date: 20121220
  Receipt Date: 20121220
  Transmission Date: 20130627
  Serious: Yes (Death, Hospitalization)
  Sender: FDA-Public Use
  Company Number: PHHY2012JP117380

PATIENT
  Age: 89 Year
  Sex: Male

DRUGS (5)
  1. RASILEZ [Suspect]
     Dosage: 150 mg, daily
     Route: 048
     Dates: start: 20101111
  2. LASIX [Concomitant]
     Dosage: 20 mg, UNK
     Route: 048
  3. ALDACTONE [Concomitant]
     Dosage: 250 mg, UNK
     Route: 048
  4. ARTIST [Concomitant]
     Dosage: 5 mg, UNK
     Route: 048
  5. GASTER [Concomitant]
     Dosage: 40 mg, UNK
     Route: 048

REACTIONS (2)
  - Cardiac failure chronic [Fatal]
  - Cardio-respiratory arrest [Unknown]
